FAERS Safety Report 15046456 (Version 1)
Quarter: 2018Q2

REPORT INFORMATION
  Report Type: Report from Study
  Country: US (occurrence: US)
  Receive Date: 20180621
  Receipt Date: 20180621
  Transmission Date: 20180711
  Serious: Yes (Death)
  Sender: FDA-Public Use
  Company Number: US-ACTELION-A-US2015-119463

PATIENT
  Age: 68 Year
  Sex: Male
  Weight: 96.15 kg

DRUGS (4)
  1. ORENITRAM [Suspect]
     Active Substance: TREPROSTINIL
     Indication: PRODUCT USED FOR UNKNOWN INDICATION
     Dosage: 1 MG, BID
     Route: 065
  2. WARFARIN [Concomitant]
     Active Substance: WARFARIN
  3. OPSUMIT [Suspect]
     Active Substance: MACITENTAN
     Indication: PULMONARY HYPERTENSION
     Dosage: 10 MG, QD
     Route: 048
     Dates: start: 20150109
  4. ADCIRCA [Concomitant]
     Active Substance: TADALAFIL

REACTIONS (13)
  - Influenza like illness [Unknown]
  - Dyspnoea [Unknown]
  - Death [Fatal]
  - Muscle spasms [Unknown]
  - Myalgia [Unknown]
  - Diarrhoea [Unknown]
  - Dysstasia [Unknown]
  - Pain in extremity [Unknown]
  - Nausea [Unknown]
  - Insomnia [Unknown]
  - Pain [Unknown]
  - Feeling abnormal [Unknown]
  - Headache [Unknown]

NARRATIVE: CASE EVENT DATE: 20180601
